FAERS Safety Report 9402511 (Version 1)
Quarter: 2013Q3

REPORT INFORMATION
  Report Type: Spontaneous
  Country: US (occurrence: US)
  Receive Date: 20130716
  Receipt Date: 20130716
  Transmission Date: 20140515
  Serious: Yes (Hospitalization)
  Sender: FDA-Public Use
  Company Number: 2013SP005307

PATIENT
  Age: 31 Year
  Sex: Male
  Weight: 168.5 kg

DRUGS (7)
  1. VANCOMYCIN [Suspect]
     Indication: STAPHYLOCOCCAL INFECTION
     Route: 042
  2. NOVOLIN [Suspect]
     Indication: DIABETES MELLITUS
  3. CEFEPIME [Concomitant]
     Route: 042
  4. METRONIDAZOLE [Concomitant]
     Route: 042
  5. PIPERACILLIN/TAZOBACTAM [Concomitant]
  6. METFORMIN [Concomitant]
  7. LISINOPRIL [Concomitant]
     Indication: HYPERTENSION

REACTIONS (4)
  - Renal tubular necrosis [Unknown]
  - Proteinuria [Unknown]
  - Haematuria [Unknown]
  - Blood creatinine increased [Recovering/Resolving]
